FAERS Safety Report 8213711-7 (Version None)
Quarter: 2012Q1

REPORT INFORMATION
  Report Type: 
  Country: None (occurrence: None)
  Receive Date: 20120315
  Receipt Date: 20120306
  Transmission Date: 20120608
  Serious: Yes (Hospitalization)
  Sender: FDA-Public Use
  Company Number: US-ASTRAZENECA-2012SE15353

PATIENT
  Age: 35 Year
  Sex: Male
  Weight: 90.7 kg

DRUGS (7)
  1. SEROQUEL [Suspect]
     Route: 048
  2. SEROQUEL [Suspect]
     Indication: PANIC ATTACK
     Route: 048
  3. SEROQUEL [Suspect]
     Indication: ANXIETY
     Route: 048
  4. SEROQUEL [Suspect]
     Indication: DEPRESSION
     Route: 048
  5. SEROQUEL [Suspect]
     Route: 048
  6. SEROQUEL [Suspect]
     Route: 048
  7. KLONOPIN [Concomitant]

REACTIONS (6)
  - VITAMIN B12 DECREASED [None]
  - BIPOLAR DISORDER [None]
  - DRUG PRESCRIBING ERROR [None]
  - DEPRESSION [None]
  - BLOOD FOLATE DECREASED [None]
  - GENERAL PHYSICAL HEALTH DETERIORATION [None]
